FAERS Safety Report 16878868 (Version 2)
Quarter: 2019Q4

REPORT INFORMATION
  Report Type: Report from Study
  Country: US (occurrence: US)
  Receive Date: 20191002
  Receipt Date: 20191008
  Transmission Date: 20200122
  Serious: Yes (Hospitalization)
  Sender: FDA-Public Use
  Company Number: US-ACTELION-A-NJ2019-196354

PATIENT
  Age: 73 Year
  Sex: Female

DRUGS (12)
  1. K-TAB [Concomitant]
     Active Substance: POTASSIUM CHLORIDE
  2. CALCIUM [Concomitant]
     Active Substance: CALCIUM
  3. REMODULIN [Suspect]
     Active Substance: TREPROSTINIL
     Indication: PULMONARY ARTERIAL HYPERTENSION
     Dosage: 4.5 NG
     Route: 058
     Dates: start: 20190711
  4. MULTIVITAMIN [Concomitant]
     Active Substance: VITAMINS
  5. PROMETHAZINE [Concomitant]
     Active Substance: PROMETHAZINE HYDROCHLORIDE
  6. SUMATRIPTAN. [Concomitant]
     Active Substance: SUMATRIPTAN
  7. CELLCEPT [Concomitant]
     Active Substance: MYCOPHENOLATE MOFETIL\MYCOPHENOLATE MOFETIL HYDROCHLORIDE
  8. OMEPRAZOLE. [Concomitant]
     Active Substance: OMEPRAZOLE
  9. ACYCLOVIR. [Concomitant]
     Active Substance: ACYCLOVIR
  10. MYCOPHENOLATE [Concomitant]
     Active Substance: MYCOPHENOLIC ACID
  11. OPSUMIT [Suspect]
     Active Substance: MACITENTAN
     Indication: PULMONARY ARTERIAL HYPERTENSION
     Dosage: 10 MG, QD
     Route: 048
     Dates: start: 20190813
  12. THALOMID [Concomitant]
     Active Substance: THALIDOMIDE
     Dosage: 50 MG, QD
     Route: 065

REACTIONS (3)
  - Staphylococcal infection [Recovering/Resolving]
  - Ill-defined disorder [Recovering/Resolving]
  - Pneumonia [Recovering/Resolving]

NARRATIVE: CASE EVENT DATE: 20190914
